FAERS Safety Report 8072651-7 (Version None)
Quarter: 2012Q1

REPORT INFORMATION
  Report Type: 
  Country: None (occurrence: None)
  Receive Date: 20120126
  Receipt Date: 20120119
  Transmission Date: 20120608
  Serious: Yes (Hospitalization)
  Sender: FDA-Public Use
  Company Number: US-BAYER-2010-006215

PATIENT
  Age: 33 Year
  Sex: Female

DRUGS (7)
  1. IBUPROFEN [Concomitant]
     Dosage: UNK
     Dates: start: 20090115
  2. AZITHROMYCIN [Concomitant]
     Dosage: 250 MG, UNK
     Dates: start: 20090121
  3. CYCLOBENZAPRINE [Concomitant]
     Dosage: UNK
     Dates: start: 20090115
  4. PREDNISONE TAB [Concomitant]
     Dosage: 10 MG, UNK
     Dates: start: 20090126
  5. HYDROCODONE BITARTRATE AND ACETAMINOPHEN [Concomitant]
     Dosage: UNK
     Dates: start: 20090116
  6. YAZ [Suspect]
     Indication: PRODUCT USED FOR UNKNOWN INDICATION
     Dosage: UNK
     Route: 048
     Dates: start: 20081116, end: 20090208
  7. METHYLPREDNISOLONE [Concomitant]
     Dosage: 4 MG, UNK
     Dates: start: 20090119

REACTIONS (1)
  - PULMONARY EMBOLISM [None]
